FAERS Safety Report 9732936 (Version 1)
Quarter: 2013Q4

REPORT INFORMATION
  Report Type: Spontaneous
  Country: US (occurrence: US)
  Receive Date: 20131204
  Receipt Date: 20131204
  Transmission Date: 20140711
  Serious: No
  Sender: FDA-Public Use
  Company Number: US-SAVIENT-2013S1000026

PATIENT
  Age: 42 Year
  Sex: Male

DRUGS (5)
  1. KRYSTEXXA [Suspect]
     Indication: PRODUCT USED FOR UNKNOWN INDICATION
     Dates: start: 20130314, end: 20130314
  2. KRYSTEXXA [Suspect]
     Dates: start: 20130328, end: 20130328
  3. KRYSTEXXA [Suspect]
     Dates: start: 20130411, end: 20130411
  4. BENADRYL [Concomitant]
     Indication: ALLERGY PROPHYLAXIS
     Route: 048
     Dates: start: 20130414, end: 20130414
  5. TYLENOL [Concomitant]
     Indication: ALLERGY PROPHYLAXIS
     Route: 048
     Dates: start: 20130414, end: 20130414

REACTIONS (1)
  - Therapeutic response decreased [Not Recovered/Not Resolved]
